FAERS Safety Report 12360188 (Version 1)
Quarter: 2016Q2

REPORT INFORMATION
  Report Type: Spontaneous
  Country: FR (occurrence: FR)
  Receive Date: 20160512
  Receipt Date: 20160512
  Transmission Date: 20160815
  Serious: Yes (Death, Hospitalization)
  Sender: FDA-Public Use
  Company Number: FR-PFIZER INC-2016241227

PATIENT
  Age: 76 Year
  Sex: Male

DRUGS (5)
  1. MORPHINE [Concomitant]
     Active Substance: MORPHINE
     Dosage: UNK
     Dates: end: 20160113
  2. IFOSFAMIDE EG [Interacting]
     Active Substance: IFOSFAMIDE
     Indication: SPINDLE CELL SARCOMA
     Dosage: 8 G, CYCLIC
     Route: 042
     Dates: start: 20160112, end: 20160112
  3. EMEND [Interacting]
     Active Substance: APREPITANT
     Indication: PROPHYLAXIS OF NAUSEA AND VOMITING
     Dosage: UNK
     Route: 048
     Dates: start: 20160112, end: 20160114
  4. DOXORUBICIN HCL [Suspect]
     Active Substance: DOXORUBICIN HYDROCHLORIDE
     Indication: SPINDLE CELL SARCOMA
     Dosage: 100 MG, CYCLIC
     Route: 042
     Dates: start: 20160112, end: 20160112
  5. UROMITEXAN [Concomitant]
     Active Substance: MESNA
     Dosage: UNK
     Route: 042
     Dates: start: 20160112, end: 20160112

REACTIONS (8)
  - Spindle cell sarcoma [Fatal]
  - Escherichia urinary tract infection [Unknown]
  - Drug interaction [Recovered/Resolved]
  - Pancytopenia [Recovered/Resolved]
  - Urinary retention [Unknown]
  - Encephalopathy [Unknown]
  - Sepsis [Unknown]
  - Disease progression [Fatal]

NARRATIVE: CASE EVENT DATE: 2016
